FAERS Safety Report 10037689 (Version 1)
Quarter: 2014Q1

REPORT INFORMATION
  Report Type: Spontaneous
  Country: US (occurrence: None)
  Receive Date: 20140306
  Receipt Date: 20140306
  Transmission Date: 20141002
  Serious: Yes (Hospitalization)
  Sender: FDA-Public Use
  Company Number: 163-21880-13080098

PATIENT
  Age: 61 Year
  Sex: Male
  Weight: 85.73 kg

DRUGS (5)
  1. REVLIMID [Suspect]
     Indication: PLASMA CELL MYELOMA
     Dosage: 10 MG, 21 IN 21 D, PO
     Route: 048
     Dates: start: 201101, end: 201104
  2. PRAVASTATIN (PRAVASTATIN) [Concomitant]
  3. GLIPIZIDE (GLIPIZIDE) [Concomitant]
  4. DEXAMETHASONE (DEXAMETHASONE) [Concomitant]
  5. CARFILZOMIB (CARFILZOMIB) [Concomitant]

REACTIONS (1)
  - Plasma cell myeloma [None]
